FAERS Safety Report 4705047-3 (Version None)
Quarter: 2005Q2

REPORT INFORMATION
  Report Type: 
  Country: None (occurrence: None)
  Receive Date: 20050629
  Receipt Date: 20050614
  Transmission Date: 20051028
  Serious: Yes (Death)
  Sender: FDA-Public Use
  Company Number: 215048

PATIENT
  Age: 65 Year
  Sex: Male
  Weight: 102.5 kg

DRUGS (14)
  1. RITUXIMAB (RITUXIMAB) CONC FOR SOLUTION FOR INFUSION [Suspect]
     Indication: RHEUMATOID ARTHRITIS
     Dosage: 1000 MG, DAYS 1 + 15, INTRAVENOUS
     Route: 042
     Dates: start: 20041013, end: 20041027
  2. METHYLPREDNISOLONE [Suspect]
     Indication: RHEUMATOID ARTHRITIS
     Dosage: 100 MG, DAYS 1 + 15, INTRAVENOUS
     Route: 042
     Dates: start: 20040210, end: 20041027
  3. PREDNISONE [Suspect]
     Indication: RHEUMATOID ARTHRITIS
     Dosage: ORAL
     Route: 048
     Dates: start: 20040211, end: 20041026
  4. METHOTREXATE [Concomitant]
  5. FOLIC ACID [Concomitant]
  6. CELEBREX [Concomitant]
  7. VICODIN [Concomitant]
  8. GLUCOPHAGE [Concomitant]
  9. TRAZODONE (TRAZODONE HYDROCHLORIDE) [Concomitant]
  10. CARDIZEM [Concomitant]
  11. LOTENSIN [Concomitant]
  12. GLYBURIDE [Concomitant]
  13. FOSAMAX (ALENDROANTE SODUM) [Concomitant]
  14. QUININE SULFATE [Concomitant]

REACTIONS (5)
  - CONDITION AGGRAVATED [None]
  - CORONARY ARTERY DISEASE [None]
  - RHEUMATOID ARTHRITIS [None]
  - SOMNOLENCE [None]
  - SUDDEN DEATH [None]
